FAERS Safety Report 8515210-1 (Version None)
Quarter: 2012Q3

REPORT INFORMATION
  Report Type: 
  Country: None (occurrence: None)
  Receive Date: 20120717
  Receipt Date: 20120712
  Transmission Date: 20120928
  Serious: Yes (Hospitalization)
  Sender: FDA-Public Use
  Company Number: CA-GLAXOSMITHKLINE-Z0015716A

PATIENT
  Sex: Male
  Weight: 94.5 kg

DRUGS (9)
  1. PAZOPANIB [Suspect]
     Indication: RENAL CELL CARCINOMA
     Dosage: 800MG PER DAY
     Route: 048
     Dates: start: 20110927
  2. ENOXAPARIN [Concomitant]
     Indication: PROPHYLAXIS
     Dosage: 40MG PER DAY
     Route: 058
     Dates: start: 20120529, end: 20120607
  3. LACTULOSE [Concomitant]
     Indication: CONSTIPATION
     Dosage: 30ML SINGLE DOSE
     Route: 048
     Dates: start: 20120601, end: 20120601
  4. COLACE [Concomitant]
     Indication: CONSTIPATION
     Dosage: 200MG SINGLE DOSE
     Route: 048
     Dates: start: 20120530, end: 20120530
  5. ADALAT [Concomitant]
     Indication: HYPERTENSION
     Dosage: 60MG PER DAY
     Route: 048
     Dates: start: 20120207, end: 20120608
  6. NORMAL SALINE + KCL [Concomitant]
     Dosage: 20MMOL AS REQUIRED
     Route: 042
     Dates: start: 20120528, end: 20120604
  7. METOPROLOL TARTRATE [Concomitant]
     Indication: HYPERTENSION
     Dosage: 25MG TWICE PER DAY
     Route: 048
     Dates: start: 20120314, end: 20120608
  8. SENOKOT [Concomitant]
     Indication: CONSTIPATION
     Dosage: 17.2MG AS REQUIRED
     Route: 048
     Dates: start: 20120530, end: 20120604
  9. RAMIPRIL [Concomitant]
     Indication: HYPERTENSION
     Dosage: 5MG PER DAY
     Route: 048
     Dates: start: 20120503, end: 20120608

REACTIONS (1)
  - PANCREATITIS [None]
